FAERS Safety Report 8398722-3 (Version None)
Quarter: 2012Q2

REPORT INFORMATION
  Report Type: 
  Country: None (occurrence: None)
  Receive Date: 20120531
  Receipt Date: 20120517
  Transmission Date: 20120825
  Serious: Yes (Other)
  Sender: FDA-Public Use
  Company Number: PHHY2012JP045152

PATIENT
  Age: 77 Year
  Sex: Female

DRUGS (1)
  1. EVEROLIMUS [Suspect]
     Indication: METASTATIC RENAL CELL CARCINOMA

REACTIONS (2)
  - LYMPHOCYTOSIS [None]
  - INTERSTITIAL LUNG DISEASE [None]
